FAERS Safety Report 21450771 (Version 1)
Quarter: 2022Q4

REPORT INFORMATION
  Report Type: Report from Study
  Country: US (occurrence: US)
  Receive Date: 20221013
  Receipt Date: 20221013
  Transmission Date: 20230112
  Serious: No
  Sender: FDA-Public Use
  Company Number: US-ABBVIE-4141495

PATIENT
  Age: 68 Year
  Sex: Male

DRUGS (5)
  1. HUMIRA [Suspect]
     Active Substance: ADALIMUMAB
     Indication: Hidradenitis
     Route: 058
  2. ISONIAZID [Concomitant]
     Active Substance: ISONIAZID
     Indication: Latent tuberculosis
     Dates: start: 20220910
  3. Pfizer/BioNTech [Concomitant]
     Indication: COVID-19 immunisation
     Dosage: 1ST DOSE ?ONCE
     Route: 030
     Dates: start: 20210223, end: 20210223
  4. Pfizer/BioNTech [Concomitant]
     Indication: COVID-19 immunisation
     Dosage: 2ND DOSE ?ONCE
     Route: 030
     Dates: start: 20210316, end: 20210316
  5. Pfizer/BioNTech [Concomitant]
     Indication: COVID-19 immunisation
     Dosage: 3RD DOSE?ONCE
     Dates: start: 20211015, end: 20211015

REACTIONS (2)
  - Arthralgia [Recovering/Resolving]
  - Latent tuberculosis [Unknown]

NARRATIVE: CASE EVENT DATE: 20220910
